FAERS Safety Report 21212280 (Version 4)
Quarter: 2022Q4

REPORT INFORMATION
  Report Type: Spontaneous
  Country: US (occurrence: US)
  Receive Date: 20220815
  Receipt Date: 20221011
  Transmission Date: 20230113
  Serious: No
  Sender: FDA-Public Use
  Company Number: US-PFIZER INC-PV202200035864

PATIENT
  Age: 14 Year
  Sex: Male
  Weight: 44.91 kg

DRUGS (2)
  1. GENOTROPIN [Suspect]
     Active Substance: SOMATROPIN
     Indication: Growth hormone deficiency
     Dosage: 1.4 MG  (1.4MG ALTERNATING WITH 1.6MG)
     Dates: start: 202205, end: 202205
  2. GENOTROPIN [Suspect]
     Active Substance: SOMATROPIN
     Dosage: 1.6 MG  (1.4MG ALTERNATING WITH 1.6MG)
     Dates: start: 202205

REACTIONS (3)
  - Wrong technique in device usage process [Unknown]
  - Device defective [Unknown]
  - Drug dose omission by device [Unknown]

NARRATIVE: CASE EVENT DATE: 20220801
